FAERS Safety Report 6144049-X (Version None)
Quarter: 2009Q2

REPORT INFORMATION
  Report Type: 
  Country: None (occurrence: None)
  Receive Date: 20090406
  Receipt Date: 20090401
  Transmission Date: 20091009
  Serious: Yes (Life-Threatening, Hospitalization)
  Sender: FDA-Public Use
  Company Number: US-WYE-H08789409

PATIENT
  Sex: Female
  Weight: 76.27 kg

DRUGS (2)
  1. PRISTIQ [Suspect]
     Indication: MAJOR DEPRESSION
     Route: 048
     Dates: start: 20090128
  2. RHINOCORT [Concomitant]
     Indication: HYPERSENSITIVITY
     Dosage: 2 SPRAYS DAILY
     Route: 045

REACTIONS (1)
  - MYOCARDIAL INFARCTION [None]
